FAERS Safety Report 9457275 (Version 1)
Quarter: 2013Q3

REPORT INFORMATION
  Report Type: Report from Study
  Country: DE (occurrence: DE)
  Receive Date: 20130814
  Receipt Date: 20130814
  Transmission Date: 20140515
  Serious: Yes (Other)
  Sender: FDA-Public Use
  Company Number: PHHY2013DE086222

PATIENT
  Sex: 0

DRUGS (10)
  1. FTY 720 [Suspect]
     Indication: MULTIPLE SCLEROSIS
     Dosage: 0.5 MG, QD
     Route: 048
     Dates: start: 20120112, end: 20120824
  2. FTY 720 [Suspect]
     Dosage: 0.5 MG, QD
     Route: 048
     Dates: start: 20120903
  3. IBUPROFEN [Concomitant]
     Dates: start: 201011
  4. FRISIUM [Concomitant]
     Dates: start: 200010
  5. KEPPRA [Concomitant]
     Dates: start: 200106
  6. LAMICTAL [Concomitant]
     Dates: start: 198808
  7. PK-MERZ [Concomitant]
     Dates: start: 200009
  8. MYDOCALM ^CHOAY LABS.^ [Concomitant]
     Dosage: 100 MG, UNK
     Dates: start: 20120510, end: 20120529
  9. URBASON                                 /GFR/ [Concomitant]
     Dates: start: 20120820, end: 20120825
  10. SATIVEX [Concomitant]
     Dates: start: 20120607

REACTIONS (3)
  - Impaired healing [Recovered/Resolved]
  - Skin lesion [Recovered/Resolved]
  - Fall [Recovered/Resolved]
